FAERS Safety Report 15196136 (Version 2)
Quarter: 2018Q3

REPORT INFORMATION
  Report Type: Spontaneous
  Country: IT (occurrence: IT)
  Receive Date: 20180725
  Receipt Date: 20180731
  Transmission Date: 20181010
  Serious: Yes (Hospitalization)
  Sender: FDA-Public Use
  Company Number: IT-ALLERGAN-1836461US

PATIENT
  Age: 24 Year
  Sex: Female

DRUGS (2)
  1. ESCITALOPRAM OXALATE ? BP [Suspect]
     Active Substance: ESCITALOPRAM OXALATE
     Indication: BULIMIA NERVOSA
     Dosage: 5 DF; IN TOTAL
     Route: 065
     Dates: start: 20180511, end: 20180511
  2. LAMICTAL [Suspect]
     Active Substance: LAMOTRIGINE
     Indication: BULIMIA NERVOSA
     Dosage: 2800 MG; IN TOTAL
     Route: 048
     Dates: start: 20180511, end: 20180511

REACTIONS (8)
  - Nystagmus [Recovered/Resolved]
  - Mydriasis [Recovered/Resolved]
  - Intentional self-injury [Recovered/Resolved]
  - Hyperreflexia [Recovered/Resolved]
  - Loss of consciousness [Recovered/Resolved]
  - Overdose [Recovered/Resolved]
  - Tachycardia [Recovered/Resolved]
  - Product use in unapproved indication [Unknown]

NARRATIVE: CASE EVENT DATE: 20180511
